FAERS Safety Report 21245694 (Version 3)
Quarter: 2023Q1

REPORT INFORMATION
  Report Type: Spontaneous
  Country: US (occurrence: None)
  Receive Date: 20220824
  Receipt Date: 20230324
  Transmission Date: 20230418
  Serious: Yes (Hospitalization, Other)
  Sender: FDA-Public Use
  Company Number: US-Emmaus Medical, Inc.-EMM202206-000114

PATIENT
  Age: 50 Year
  Sex: Female
  Weight: 61.69 kg

DRUGS (10)
  1. ENDARI [Suspect]
     Active Substance: GLUTAMINE
     Indication: Thalassaemia beta
     Dosage: 5 G
     Route: 048
     Dates: start: 20190716
  2. ENDARI [Suspect]
     Active Substance: GLUTAMINE
     Dosage: 5 G
     Route: 048
     Dates: start: 202208
  3. ENDARI [Suspect]
     Active Substance: GLUTAMINE
     Dosage: 5 G (ONE PACKET OF 5 GM BY MOUTH)
     Route: 048
     Dates: start: 202210
  4. ENDARI [Suspect]
     Active Substance: GLUTAMINE
     Dosage: 5 G
     Route: 048
     Dates: start: 20221213
  5. ENDARI [Suspect]
     Active Substance: GLUTAMINE
     Dosage: 5 G
     Route: 048
  6. ENDARI [Suspect]
     Active Substance: GLUTAMINE
     Dosage: 5 G
     Route: 048
     Dates: start: 20190510
  7. FOLVITE [Concomitant]
     Active Substance: FOLIC ACID
     Indication: Hypovitaminosis
     Dosage: 1 MG
     Route: 048
  8. HYDROCORTISONE [Concomitant]
     Active Substance: HYDROCORTISONE
     Indication: Product used for unknown indication
     Dosage: UNKNOWN
     Route: 061
     Dates: start: 20220928
  9. TOPROL XL [Concomitant]
     Active Substance: METOPROLOL SUCCINATE
     Indication: Hypertension
     Dosage: 25 MG (EXTENDED RELEASE/ER)
     Route: 048
  10. IRON [Concomitant]
     Active Substance: IRON
     Indication: Thalassaemia beta
     Dosage: 325 MG (65 MG IRON)
     Route: 048

REACTIONS (8)
  - Sepsis [Recovering/Resolving]
  - Pneumonia [Recovering/Resolving]
  - Sickle cell anaemia with crisis [Recovering/Resolving]
  - Headache [Recovered/Resolved]
  - Constipation [Unknown]
  - Intentional underdose [Unknown]
  - Inappropriate schedule of product administration [Unknown]
  - Product dose omission issue [Unknown]

NARRATIVE: CASE EVENT DATE: 20220901
